FAERS Safety Report 7429018-1 (Version None)
Quarter: 2011Q2

REPORT INFORMATION
  Report Type: 
  Country: None (occurrence: None)
  Receive Date: 20110421
  Receipt Date: 20110412
  Transmission Date: 20111010
  Serious: Yes (Hospitalization, Other)
  Sender: FDA-Public Use
  Company Number: US-ROCHE-731983

PATIENT
  Sex: Female
  Weight: 46.3 kg

DRUGS (4)
  1. ACCUTANE [Suspect]
     Route: 048
     Dates: start: 20021025
  2. ACCUTANE [Suspect]
     Route: 048
     Dates: start: 20030203
  3. ACCUTANE [Suspect]
     Route: 048
     Dates: start: 20030103
  4. ACCUTANE [Suspect]
     Route: 048
     Dates: start: 20030303, end: 20030416

REACTIONS (11)
  - EPISTAXIS [None]
  - COLITIS ULCERATIVE [None]
  - VISION BLURRED [None]
  - BACK PAIN [None]
  - DRY SKIN [None]
  - DERMATITIS ATOPIC [None]
  - SUICIDE ATTEMPT [None]
  - DEPRESSION [None]
  - DIZZINESS [None]
  - MYALGIA [None]
  - SKIN DISCOLOURATION [None]
